FAERS Safety Report 16189613 (Version 1)
Quarter: 2019Q2

REPORT INFORMATION
  Report Type: Spontaneous
  Country: US (occurrence: US)
  Receive Date: 20190308
  Receipt Date: 20190308
  Transmission Date: 20190711
  Serious: No
  Sender: FDA-Public Use
  Company Number: None

PATIENT
  Age: 70 Year
  Sex: Female

DRUGS (1)
  1. RASUVO [Suspect]
     Active Substance: METHOTREXATE SODIUM
     Indication: MYOPATHY
     Route: 058
     Dates: start: 20190201

REACTIONS (3)
  - Diarrhoea [None]
  - Erythema [None]
  - Abdominal discomfort [None]

NARRATIVE: CASE EVENT DATE: 201902
